FAERS Safety Report 21073404 (Version 1)
Quarter: 2022Q3

REPORT INFORMATION
  Report Type: Spontaneous
  Country: FR (occurrence: FR)
  Receive Date: 20220713
  Receipt Date: 20220713
  Transmission Date: 20221027
  Serious: Yes (Other)
  Sender: FDA-Public Use
  Company Number: FR-CELLTRION INC.-2022FR010742

PATIENT

DRUGS (4)
  1. INFLIXIMAB [Suspect]
     Active Substance: INFLIXIMAB
     Indication: Immune reconstitution inflammatory syndrome associated tuberculosis
     Dosage: 5 MG/KG, (D1, D14 )
  2. DARUNAVIR [Concomitant]
     Active Substance: DARUNAVIR
     Indication: Immune reconstitution inflammatory syndrome associated tuberculosis
     Dosage: UNKNOWN
  3. EMTRICITABINE [Concomitant]
     Active Substance: EMTRICITABINE
     Indication: Immune reconstitution inflammatory syndrome associated tuberculosis
     Dosage: UNKNOWN
  4. TENOFOVIR [Concomitant]
     Active Substance: TENOFOVIR
     Indication: Immune reconstitution inflammatory syndrome associated tuberculosis
     Dosage: UNKNOWN

REACTIONS (3)
  - Immune reconstitution inflammatory syndrome associated tuberculosis [Recovered/Resolved]
  - Therapeutic product effect incomplete [Unknown]
  - Off label use [Unknown]
